FAERS Safety Report 17214478 (Version 1)
Quarter: 2019Q4

REPORT INFORMATION
  Report Type: Spontaneous
  Country: US (occurrence: US)
  Receive Date: 20191206
  Receipt Date: 20191206
  Transmission Date: 20200122
  Serious: Yes (Disabling, Other)
  Sender: FDA-Public Use
  Company Number: None

PATIENT
  Age: 76 Year
  Sex: Female
  Weight: 90.72 kg

DRUGS (2)
  1. LEVOFLOXACIN 500MG [Suspect]
     Active Substance: LEVOFLOXACIN
     Indication: URINARY TRACT INFECTION
     Route: 048
     Dates: start: 20181218, end: 20181225
  2. LEVOFLOXACIN 500MG [Suspect]
     Active Substance: LEVOFLOXACIN
     Indication: HELICOBACTER INFECTION
     Route: 048
     Dates: start: 20180218, end: 20180304

REACTIONS (9)
  - Rotator cuff syndrome [None]
  - Pain in extremity [None]
  - Heart rate irregular [None]
  - Carpal tunnel syndrome [None]
  - Amnesia [None]
  - Insomnia [None]
  - Tendonitis [None]
  - Constipation [None]
  - Heart rate increased [None]

NARRATIVE: CASE EVENT DATE: 20180220
